FAERS Safety Report 4626791-2 (Version None)
Quarter: 2005Q2

REPORT INFORMATION
  Report Type: 
  Country: None (occurrence: None)
  Receive Date: 20050401
  Receipt Date: 20050401
  Transmission Date: 20051028
  Serious: Yes (Other)
  Sender: FDA-Public Use
  Company Number: None

PATIENT
  Sex: Male
  Weight: 83.9154 kg

DRUGS (2)
  1. ELIDEL [Suspect]
     Indication: ECZEMA
     Dosage: THIN LAYER 2X/DAY TOPICAL
     Route: 061
     Dates: start: 20050212, end: 20050215
  2. LIPITOR [Concomitant]

REACTIONS (3)
  - FURUNCLE [None]
  - PAIN OF SKIN [None]
  - RASH [None]
